FAERS Safety Report 6399168-X (Version None)
Quarter: 2009Q4

REPORT INFORMATION
  Report Type: 
  Country: None (occurrence: None)
  Receive Date: 20091008
  Receipt Date: 20090923
  Transmission Date: 20100525
  Serious: Yes (Other)
  Sender: FDA-Public Use
  Company Number: 091005-0001046

PATIENT
  Age: 3 Year
  Sex: Male

DRUGS (6)
  1. VIGABATRIN (VIGABATRIN) [Suspect]
     Indication: CONVULSION
     Dosage: 250 MG;BID;PO
     Route: 048
     Dates: start: 20090820, end: 20090820
  2. VIGABATRIN (VIGABATRIN) [Suspect]
     Indication: MUSCLE SPASMS
     Dosage: 250 MG;BID;PO
     Route: 048
     Dates: start: 20090820, end: 20090820
  3. DOMPERIDONE [Concomitant]
  4. LAMOTRIGINE [Concomitant]
  5. PHENOBARBITAL TAB [Concomitant]
  6. VALPROATE SODIUM [Concomitant]

REACTIONS (4)
  - ANGIOEDEMA [None]
  - DRUG HYPERSENSITIVITY [None]
  - RASH ERYTHEMATOUS [None]
  - RESPIRATORY DISTRESS [None]
